FAERS Safety Report 7991759-5 (Version None)
Quarter: 2011Q4

REPORT INFORMATION
  Report Type: 
  Country: None (occurrence: None)
  Receive Date: 20111219
  Receipt Date: 20111212
  Transmission Date: 20120403
  Serious: Yes (Other)
  Sender: FDA-Public Use
  Company Number: PHHY2011SE101288

PATIENT
  Sex: Female

DRUGS (5)
  1. COLECALCIFEROL [Concomitant]
     Dosage: UNK UKN, UNK
  2. CALCICHEW-D3 [Concomitant]
     Dosage: UNK UKN, UNK
  3. ZOLEDRONOC ACID [Suspect]
     Indication: OSTEOPOROSIS
     Dosage: 5 MG, UNK
     Route: 042
     Dates: start: 20111103
  4. VITAMIN D [Concomitant]
     Dosage: UNK UKN, UNK
  5. LEVOTHYROXINE SODIUM [Concomitant]
     Dosage: UNK UKN, UNK

REACTIONS (11)
  - FEELING ABNORMAL [None]
  - PAIN [None]
  - MALAISE [None]
  - CHEST PAIN [None]
  - BACK PAIN [None]
  - CHILLS [None]
  - NIGHT SWEATS [None]
  - PYREXIA [None]
  - HEADACHE [None]
  - RED BLOOD CELL SEDIMENTATION RATE INCREASED [None]
  - C-REACTIVE PROTEIN INCREASED [None]
